FAERS Safety Report 11816370 (Version 1)
Quarter: 2015Q4

REPORT INFORMATION
  Report Type: Spontaneous
  Country: US (occurrence: US)
  Receive Date: 20151209
  Receipt Date: 20151209
  Transmission Date: 20160305
  Serious: Yes (Other)
  Sender: FDA-Public Use
  Company Number: US-MYLANLABS-2015M1042693

PATIENT

DRUGS (9)
  1. FLUTICASONE [Suspect]
     Active Substance: FLUTICASONE\FLUTICASONE PROPIONATE
     Indication: COUGH
     Route: 045
  2. PREDNISONE. [Suspect]
     Active Substance: PREDNISONE
     Indication: COUGH
  3. FOLINIC ACID [Suspect]
     Active Substance: LEUCOVORIN
     Indication: COUGH
  4. OMEPRAZOLE. [Suspect]
     Active Substance: OMEPRAZOLE
     Indication: COUGH
  5. LORATADINE. [Suspect]
     Active Substance: LORATADINE
     Indication: COUGH
  6. FLUTICASONE W/SALMETEROL [Suspect]
     Active Substance: FLUTICASONE PROPIONATE\SALMETEROL XINAFOATE
     Indication: COUGH
     Route: 065
  7. FLUOROURACIL. [Suspect]
     Active Substance: FLUOROURACIL
     Indication: LUNG NEOPLASM MALIGNANT
     Route: 065
  8. FOLINIC ACID [Suspect]
     Active Substance: LEUCOVORIN
     Indication: LUNG NEOPLASM MALIGNANT
  9. FLUOROURACIL. [Suspect]
     Active Substance: FLUOROURACIL
     Indication: COUGH

REACTIONS (1)
  - Drug ineffective [Unknown]
